FAERS Safety Report 22027706 (Version 1)
Quarter: 2023Q1

REPORT INFORMATION
  Report Type: Spontaneous
  Country: US (occurrence: None)
  Receive Date: 20230223
  Receipt Date: 20230223
  Transmission Date: 20230418
  Serious: No
  Sender: FDA-Public Use
  Company Number: US-ROCHE-3234397

PATIENT
  Sex: Female

DRUGS (2)
  1. XOLAIR [Suspect]
     Active Substance: OMALIZUMAB
     Indication: Chronic spontaneous urticaria
     Route: 065
     Dates: start: 20221201
  2. DUPIXENT [Concomitant]
     Active Substance: DUPILUMAB

REACTIONS (3)
  - Rash [Recovered/Resolved]
  - Off label use [Unknown]
  - Rash pruritic [Unknown]

NARRATIVE: CASE EVENT DATE: 20221203
